FAERS Safety Report 9356358 (Version 1)
Quarter: 2013Q2

REPORT INFORMATION
  Report Type: Spontaneous
  Country: US (occurrence: None)
  Receive Date: 20130614
  Receipt Date: 20130614
  Transmission Date: 20140414
  Serious: Yes (Hospitalization)
  Sender: FDA-Public Use
  Company Number: 2013US001703

PATIENT
  Age: 40 Year
  Sex: Female
  Weight: 99 kg

DRUGS (7)
  1. ICLUSIG [Suspect]
     Indication: CHRONIC MYELOID LEUKAEMIA
     Route: 048
  2. COMPAZINE (PROCHLORPERAZINE EDISYLATE) [Concomitant]
  3. AMBIEN (ZOLPIDEM TARTRATE) [Concomitant]
  4. ZOFRAN  (ONDANSETRON) [Concomitant]
  5. ALBUTEROL (ALBUTEROL) [Concomitant]
  6. CALCIUM WITH VITAMIN D (CALCIUM CARBONATE, COLECALCIFEROL) [Concomitant]
  7. BACLOFEN (BACLOFEN) [Concomitant]

REACTIONS (4)
  - Infection [None]
  - Delirium [None]
  - Pyrexia [None]
  - Asthenia [None]
